FAERS Safety Report 16707825 (Version 1)
Quarter: 2019Q3

REPORT INFORMATION
  Report Type: Report from Study
  Country: CA (occurrence: CA)
  Receive Date: 20190815
  Receipt Date: 20190815
  Transmission Date: 20191004
  Serious: Yes (Other)
  Sender: FDA-Public Use
  Company Number: CA-PFIZER INC-2019339371

PATIENT
  Age: 18 Year
  Sex: Male

DRUGS (4)
  1. FENTANYL. [Concomitant]
     Active Substance: FENTANYL
     Indication: SEDATIVE THERAPY
     Dosage: (1.5 UG / KG )
     Route: 042
  2. LORAZEPAM. [Concomitant]
     Active Substance: LORAZEPAM
     Dosage: 2 MG, UNK
     Route: 042
  3. MORPHINE [Concomitant]
     Active Substance: MORPHINE
     Dosage: 8 MG, UNK
     Route: 042
  4. PROPOFOL. [Suspect]
     Active Substance: PROPOFOL
     Indication: SEDATIVE THERAPY
     Dosage: (A 0.8 MG/ KG BOLUS AND A 0.12 MG/ KG / MIN INFUSION )

REACTIONS (3)
  - Overdose [Unknown]
  - Apnoeic attack [Recovered/Resolved]
  - Oxygen saturation decreased [Recovered/Resolved]
